FAERS Safety Report 11284746 (Version 3)
Quarter: 2015Q3

REPORT INFORMATION
  Report Type: Spontaneous
  Country: IT (occurrence: IT)
  Receive Date: 20150720
  Receipt Date: 20150803
  Transmission Date: 20151125
  Serious: Yes (Other)
  Sender: FDA-Public Use
  Company Number: IT-UCBSA-2015022973

PATIENT
  Age: 74 Year
  Sex: Female
  Weight: 65 kg

DRUGS (3)
  1. PREDNISONE. [Concomitant]
     Active Substance: PREDNISONE
     Indication: PRODUCT USED FOR UNKNOWN INDICATION
     Dosage: 2.5 MG, ONCE DAILY (QD)
     Dates: start: 201202
  2. CIMZIA [Suspect]
     Active Substance: CERTOLIZUMAB PEGOL
     Indication: RHEUMATOID ARTHRITIS
     Dosage: 200 MG, EV 2 WEEKS(QOW) (EXP. DATE: FEB-2016, MAR-2016)
     Dates: start: 20131112, end: 20150505
  3. PLAQUENIL [Concomitant]
     Active Substance: HYDROXYCHLOROQUINE SULFATE
     Indication: RHEUMATOID ARTHRITIS
     Dosage: 400 MG, UNK
     Route: 048
     Dates: start: 201202

REACTIONS (1)
  - Thyroid cancer stage 0 [Recovered/Resolved with Sequelae]

NARRATIVE: CASE EVENT DATE: 20150110
